FAERS Safety Report 25954548 (Version 1)
Quarter: 2025Q4

REPORT INFORMATION
  Report Type: Spontaneous
  Country: US (occurrence: US)
  Receive Date: 20251024
  Receipt Date: 20251024
  Transmission Date: 20260118
  Serious: No
  Sender: GLAXOSMITHKLINE
  Company Number: US-GSK-US2025131254

PATIENT
  Age: 82 Year
  Sex: Male

DRUGS (1)
  1. INCRUSE ELLIPTA [Suspect]
     Active Substance: UMECLIDINIUM BROMIDE
     Indication: Emphysema
     Dosage: 62.5 MCG BY ORAL INHALATION ONCE A DAY

REACTIONS (1)
  - Drug ineffective [Unknown]
